FAERS Safety Report 7100064-0 (Version None)
Quarter: 2010Q4

REPORT INFORMATION
  Report Type: 
  Country: None (occurrence: None)
  Receive Date: 20101112
  Receipt Date: 20101102
  Transmission Date: 20110411
  Serious: Yes (Other)
  Sender: FDA-Public Use
  Company Number: RS-ALLERGAN-1014103US

PATIENT
  Age: 17 Year
  Sex: Male

DRUGS (1)
  1. PILOCARPINE HYDROCHLORIDE [Suspect]
     Indication: PRODUCT USED FOR UNKNOWN INDICATION
     Route: 061

REACTIONS (2)
  - ANGLE CLOSURE GLAUCOMA [None]
  - PUPILLARY DISORDER [None]
